FAERS Safety Report 16055071 (Version 2)
Quarter: 2019Q2

REPORT INFORMATION
  Report Type: Spontaneous
  Country: US (occurrence: US)
  Receive Date: 20190310
  Receipt Date: 20190523
  Transmission Date: 20190711
  Serious: Yes (Hospitalization, Other)
  Sender: FDA-Public Use
  Company Number: US-PRINSTON PHARMACEUTICAL INC.-2018PRN01296

PATIENT
  Sex: Female
  Weight: 63.04 kg

DRUGS (2)
  1. INSULIN [Concomitant]
     Active Substance: INSULIN NOS
  2. VALSARTAN. [Suspect]
     Active Substance: VALSARTAN
     Indication: BLOOD PRESSURE INADEQUATELY CONTROLLED
     Dosage: 80 MG, 1X/DAY IN THE MORNING
     Route: 048
     Dates: start: 2017, end: 2018

REACTIONS (7)
  - Syncope [Recovered/Resolved]
  - Fall [Recovered/Resolved]
  - Eye disorder [Unknown]
  - Drug ineffective [Recovered/Resolved]
  - Cataract [Unknown]
  - Recalled product administered [Recovered/Resolved]
  - Dizziness [Recovered/Resolved]

NARRATIVE: CASE EVENT DATE: 2017
